FAERS Safety Report 16167202 (Version 1)
Quarter: 2019Q2

REPORT INFORMATION
  Report Type: Spontaneous
  Country: CN (occurrence: CN)
  Receive Date: 20190408
  Receipt Date: 20190408
  Transmission Date: 20190711
  Serious: Yes (Hospitalization, Other)
  Sender: FDA-Public Use
  Company Number: CN-BAXTER-2019BAX006832

PATIENT
  Age: 32 Year
  Sex: Male
  Weight: 80 kg

DRUGS (22)
  1. 0.9% SODIUM CHLORIDE INJECTION [Suspect]
     Active Substance: SODIUM CHLORIDE
     Dosage: 13 CHEMOTHERAPY TREATMENTS, VINCRISTINE SULFATE + NS
     Route: 041
  2. VINCRISTINE SULFATE. [Suspect]
     Active Substance: VINCRISTINE SULFATE
     Indication: PRODUCT USED FOR UNKNOWN INDICATION
     Route: 065
  3. VINCRISTINE SULFATE. [Suspect]
     Active Substance: VINCRISTINE SULFATE
     Dosage: 0.9%NS 50ML+VINCRISTINE 2MG IVGTT
     Route: 041
     Dates: start: 20190308, end: 20190308
  4. ENDOXAN [Suspect]
     Active Substance: CYCLOPHOSPHAMIDE
     Route: 065
  5. 0.9% SODIUM CHLORIDE INJECTION [Suspect]
     Active Substance: SODIUM CHLORIDE
     Indication: MEDICATION DILUTION
     Dosage: 13 CHEMOTHERAPY TREATMENTS, ENDOXAN + NS
     Route: 041
  6. 0.9% SODIUM CHLORIDE INJECTION [Suspect]
     Active Substance: SODIUM CHLORIDE
     Dosage: 0.9%NS 50ML+VINCRISTINE 2MG IVGTT
     Route: 041
     Dates: start: 20190308, end: 20190308
  7. VINCRISTINE SULFATE. [Suspect]
     Active Substance: VINCRISTINE SULFATE
     Indication: NON-HODGKIN^S LYMPHOMA
     Dosage: 13 CHEMOTHERAPY TREATMENTS, VINCRISTINE SULFATE + NS
     Route: 041
  8. ENDOXAN [Suspect]
     Active Substance: CYCLOPHOSPHAMIDE
     Indication: NON-HODGKIN^S LYMPHOMA
     Dosage: 13 CHEMOTHERAPY TREATMENTS, ENDOXAN + NS
     Route: 065
  9. 5% GLUCOSE  INJECTION [Suspect]
     Active Substance: DEXTROSE
     Dosage: 5%GS 250ML+ CYTARABINE 0.19G IT
     Route: 037
     Dates: start: 20190308, end: 20190313
  10. EPIRUBICIN HYDROCHLORIDE. [Suspect]
     Active Substance: EPIRUBICIN HYDROCHLORIDE
     Dosage: 0.9%NS 100ML+EPIRUBICIN145MG IVGTT
     Route: 041
     Dates: start: 20190308, end: 20190308
  11. CYTARABINE HYDROCHLORIDE [Suspect]
     Active Substance: CYTARABINE HYDROCHLORIDE
     Indication: NON-HODGKIN^S LYMPHOMA
     Dosage: 13 CHEMOTHERAPY TREATMENTS, CYTARABINE+GS
     Route: 037
  12. ENDOXAN [Suspect]
     Active Substance: CYCLOPHOSPHAMIDE
     Indication: PRODUCT USED FOR UNKNOWN INDICATION
     Dosage: 0.9%NS 100ML+CYCLOPHOSPHAMIDE 1.2G IVGTT
     Route: 041
     Dates: start: 20190308, end: 20190308
  13. 0.9% SODIUM CHLORIDE INJECTION [Suspect]
     Active Substance: SODIUM CHLORIDE
     Dosage: 0.9%NS 100ML+EPIRUBICIN145MG IVGTT
     Route: 041
     Dates: start: 20190308, end: 20190308
  14. MITOXANTRONE HYDROCHLORIDE. [Suspect]
     Active Substance: MITOXANTRONE HYDROCHLORIDE
     Indication: PRODUCT USED FOR UNKNOWN INDICATION
     Route: 065
  15. 0.9% SODIUM CHLORIDE INJECTION [Suspect]
     Active Substance: SODIUM CHLORIDE
     Dosage: 13 CHEMOTHERAPY TREATMENTS, EPIRUBICIN + NS
     Route: 041
  16. CYTARABINE HYDROCHLORIDE [Suspect]
     Active Substance: CYTARABINE HYDROCHLORIDE
     Indication: PRODUCT USED FOR UNKNOWN INDICATION
     Route: 065
  17. CYTARABINE HYDROCHLORIDE [Suspect]
     Active Substance: CYTARABINE HYDROCHLORIDE
     Dosage: 5%GS 250ML+ CYTARABINE 0.19G
     Route: 037
     Dates: start: 20190308, end: 20190313
  18. 5% GLUCOSE  INJECTION [Suspect]
     Active Substance: DEXTROSE
     Indication: PRODUCT USED FOR UNKNOWN INDICATION
     Dosage: 13 CHEMOTHERAPY TREATMENTS, CYTARABINE+GS
     Route: 037
  19. 0.9% SODIUM CHLORIDE INJECTION [Suspect]
     Active Substance: SODIUM CHLORIDE
     Dosage: 0.9%NS 100ML+CYCLOPHOSPHAMIDE 1.2G IVGTT
     Route: 041
     Dates: start: 20190308, end: 20190308
  20. EPIRUBICIN HYDROCHLORIDE. [Suspect]
     Active Substance: EPIRUBICIN HYDROCHLORIDE
     Indication: NON-HODGKIN^S LYMPHOMA
     Dosage: 13 CHEMOTHERAPY TREATMENTS, EPIRUBICIN + NS
     Route: 041
  21. DEXAMETHASONE SODIUM PHOSPHATE. [Suspect]
     Active Substance: DEXAMETHASONE SODIUM PHOSPHATE
     Indication: NON-HODGKIN^S LYMPHOMA
     Route: 040
     Dates: start: 20190308, end: 20190313
  22. DEXAMETHASONE SODIUM PHOSPHATE. [Suspect]
     Active Substance: DEXAMETHASONE SODIUM PHOSPHATE
     Dosage: 13 CHEMOTHERAPY TREATMENTS
     Route: 040

REACTIONS (2)
  - Bone marrow failure [Recovering/Resolving]
  - Bone marrow failure [Recovered/Resolved]

NARRATIVE: CASE EVENT DATE: 20190317
